FAERS Safety Report 9782424 (Version 2)
Quarter: 2014Q1

REPORT INFORMATION
  Report Type: Spontaneous
  Country: US (occurrence: US)
  Receive Date: 20131226
  Receipt Date: 20140110
  Transmission Date: 20141002
  Serious: Yes (Death)
  Sender: FDA-Public Use
  Company Number: US-JNJFOC-20131214686

PATIENT
  Age: 22 Year
  Sex: Male

DRUGS (1)
  1. ULTRAM [Suspect]
     Indication: PRODUCT USED FOR UNKNOWN INDICATION
     Dosage: EXCESS OF 1000MG
     Route: 065

REACTIONS (5)
  - Intentional self-injury [Fatal]
  - Intentional overdose [Unknown]
  - Confusional state [Unknown]
  - Feeling abnormal [Unknown]
  - Wrong technique in drug usage process [Unknown]
